FAERS Safety Report 7002136-8 (Version None)
Quarter: 2010Q3

REPORT INFORMATION
  Report Type: 
  Country: None (occurrence: None)
  Receive Date: 20100920
  Receipt Date: 20100309
  Transmission Date: 20110219
  Serious: Yes (Other)
  Sender: FDA-Public Use
  Company Number: US-ASTRAZENECA-2008UW12178

PATIENT
  Age: 31 Year
  Sex: Female
  Weight: 106.1 kg

DRUGS (11)
  1. SEROQUEL [Suspect]
     Indication: BIPOLAR DISORDER
     Dosage: 200 TO 300 MG
     Route: 048
     Dates: start: 20050901, end: 20070301
  2. SEROQUEL [Suspect]
     Route: 048
     Dates: start: 20050922
  3. ABILIFY [Concomitant]
     Dates: start: 20070101, end: 20080101
  4. GEODON [Concomitant]
     Dates: start: 20050101
  5. GEODON [Concomitant]
     Route: 048
     Dates: start: 20050922
  6. RISPERDAL [Concomitant]
     Dosage: 15 MG AS REQUIRED
     Dates: start: 20080701
  7. LEXAPRO [Concomitant]
     Dates: start: 20060101, end: 20070101
  8. LEXAPRO [Concomitant]
     Route: 048
     Dates: start: 20060101
  9. VALPROIC ACID [Concomitant]
     Dosage: 250 MG 8 CAPSULE AT BEDTIME
     Route: 048
     Dates: start: 20051201
  10. LEVOTHYROXINE SODIUM [Concomitant]
     Route: 048
     Dates: start: 20060101
  11. DEPAKOTE [Concomitant]
     Route: 048
     Dates: start: 20050922

REACTIONS (5)
  - BLOOD CHOLESTEROL INCREASED [None]
  - DIABETES MELLITUS [None]
  - OBESITY [None]
  - SUICIDE ATTEMPT [None]
  - THYROID DISORDER [None]
